FAERS Safety Report 19594628 (Version 2)
Quarter: 2022Q2

REPORT INFORMATION
  Report Type: Spontaneous
  Country: US (occurrence: US)
  Receive Date: 20210722
  Receipt Date: 20220526
  Transmission Date: 20220721
  Serious: No
  Sender: FDA-Public Use
  Company Number: US-BRISTOL-MYERS SQUIBB COMPANY-BMS-2021-071471

PATIENT
  Age: 24 Year
  Sex: Female

DRUGS (2)
  1. SPRYCEL [Suspect]
     Active Substance: DASATINIB
     Indication: Chronic myeloid leukaemia (in remission)
     Dosage: 70 MG, 1 TABLET
     Route: 048
  2. SPRYCEL [Suspect]
     Active Substance: DASATINIB
     Dosage: DAILY
     Route: 048

REACTIONS (5)
  - Product dose omission issue [Unknown]
  - Diarrhoea [Unknown]
  - Migraine [Unknown]
  - Night sweats [Unknown]
  - Malaise [Unknown]

NARRATIVE: CASE EVENT DATE: 20220329
